FAERS Safety Report 9788950 (Version 3)
Quarter: 2017Q4

REPORT INFORMATION
  Report Type: Report from Study
  Country: US (occurrence: US)
  Receive Date: 20131230
  Receipt Date: 20171222
  Transmission Date: 20180321
  Serious: No
  Sender: FDA-Public Use
  Company Number: US-ASTELLAS-2013US013484

PATIENT
  Sex: Male

DRUGS (4)
  1. ERLOTINIB [Suspect]
     Active Substance: ERLOTINIB
     Indication: LUNG NEOPLASM MALIGNANT
     Route: 048
  2. CARBOXYMETHYLCELLULOSE SODIUM. [Concomitant]
     Active Substance: CARBOXYMETHYLCELLULOSE SODIUM
     Indication: DRY EYE
     Dosage: UNK, UNKNOWN FREQ.
     Route: 047
  3. ERLOTINIB [Suspect]
     Active Substance: ERLOTINIB
     Route: 048
     Dates: start: 201307
  4. ERLOTINIB [Suspect]
     Active Substance: ERLOTINIB
     Indication: LUNG CARCINOMA CELL TYPE UNSPECIFIED STAGE IV
     Route: 048
     Dates: end: 201307

REACTIONS (18)
  - Muscular weakness [Not Recovered/Not Resolved]
  - Body height decreased [Unknown]
  - Altered visual depth perception [Recovering/Resolving]
  - Psychiatric symptom [Not Recovered/Not Resolved]
  - Skin exfoliation [Recovered/Resolved]
  - Dyspnoea [Not Recovered/Not Resolved]
  - Rash [Unknown]
  - Lacrimation increased [Unknown]
  - Weight decreased [Unknown]
  - Eye inflammation [Unknown]
  - Sunburn [Unknown]
  - Eye discharge [Not Recovered/Not Resolved]
  - Decreased appetite [Recovering/Resolving]
  - Fatigue [Unknown]
  - Asthenia [Not Recovered/Not Resolved]
  - Ill-defined disorder [Recovering/Resolving]
  - Balance disorder [Unknown]
  - Hypoacusis [Not Recovered/Not Resolved]

NARRATIVE: CASE EVENT DATE: 2016
